FAERS Safety Report 24645403 (Version 1)
Quarter: 2024Q4

REPORT INFORMATION
  Report Type: Report from Study
  Country: US (occurrence: US)
  Receive Date: 20241121
  Receipt Date: 20241121
  Transmission Date: 20250114
  Serious: Yes (Hospitalization)
  Sender: ROCHE
  Company Number: US-ROCHE-10000131226

PATIENT
  Age: 65 Year
  Sex: Male
  Weight: 86.18 kg

DRUGS (9)
  1. OCREVUS [Suspect]
     Active Substance: OCRELIZUMAB
     Indication: Multiple sclerosis
     Route: 042
     Dates: start: 201908
  2. ALLOPURINOL [Concomitant]
     Active Substance: ALLOPURINOL
     Indication: Gout
     Route: 048
     Dates: start: 2014
  3. ATORVASTATIN [Concomitant]
     Active Substance: ATORVASTATIN
     Indication: Blood cholesterol
     Route: 048
     Dates: start: 2017
  4. omega-3 fish [Concomitant]
  5. ALFALFA [Concomitant]
     Active Substance: ALFALFA
  6. LOVASTATIN [Concomitant]
     Active Substance: LOVASTATIN
  7. FLUTICASONE [Concomitant]
     Active Substance: FLUTICASONE
  8. ASPIRIN [Concomitant]
     Active Substance: ASPIRIN
  9. VITAMIN D [Concomitant]
     Active Substance: VITAMIN D NOS

REACTIONS (3)
  - COVID-19 [Unknown]
  - Pneumonia [Unknown]
  - Blood glucose decreased [Unknown]

NARRATIVE: CASE EVENT DATE: 20241029
